FAERS Safety Report 8460063-3 (Version None)
Quarter: 2012Q2

REPORT INFORMATION
  Report Type: 
  Country: None (occurrence: None)
  Receive Date: 20120622
  Receipt Date: 20120615
  Transmission Date: 20120825
  Serious: Yes (Other)
  Sender: FDA-Public Use
  Company Number: ZA-B.I. PHARMACEUTICALS,INC./RIDGEFIELD-2012-EU-03200GD

PATIENT

DRUGS (11)
  1. FLUCYTOSINE [Suspect]
     Indication: MENINGITIS CRYPTOCOCCAL
     Dosage: 100 MG/KG (25 MG/KG 4 TIMES PER DAY)
     Route: 048
  2. POTASSIUM CHLORIDE [Concomitant]
     Indication: DRUG TOXICITY PROPHYLAXIS
     Dosage: 20 MMOL IN 1L 0.9% NORMAL SALINE
  3. DIFLUCAN [Concomitant]
     Dosage: 200 MG
  4. FUNGIZONE [Suspect]
     Indication: MENINGITIS CRYPTOCOCCAL
     Dosage: 1 MG/KG PER DAY
     Route: 042
  5. NEVIRAPINE [Suspect]
     Indication: HIV INFECTION
  6. POTASSIUM ACETATE [Concomitant]
     Indication: SUPPLEMENTATION THERAPY
     Route: 048
  7. MAGNESIUM [Concomitant]
     Indication: SUPPLEMENTATION THERAPY
     Route: 048
  8. LAMIVUDINE [Concomitant]
     Indication: HIV INFECTION
  9. INTERFERON GAMMA NOS [Suspect]
     Indication: MENINGITIS CRYPTOCOCCAL
     Dosage: 50 MCG
     Route: 058
  10. DIFLUCAN [Concomitant]
     Indication: MENINGITIS CRYPTOCOCCAL
     Dosage: 400 MG
  11. STAVUDINE [Concomitant]
     Indication: HIV INFECTION

REACTIONS (1)
  - TOXICITY TO VARIOUS AGENTS [None]
